FAERS Safety Report 9742914 (Version 1)
Quarter: 2013Q4

REPORT INFORMATION
  Report Type: Spontaneous
  Country: US (occurrence: US)
  Receive Date: 20131210
  Receipt Date: 20131210
  Transmission Date: 20140711
  Serious: No
  Sender: FDA-Public Use
  Company Number: US-VIIV HEALTHCARE LIMITED-A1049084A

PATIENT
  Age: 79 Year
  Sex: Male

DRUGS (1)
  1. TIVICAY [Suspect]
     Indication: HIV INFECTION
     Route: 048
     Dates: start: 2013

REACTIONS (1)
  - Blood creatine increased [Unknown]
